FAERS Safety Report 17812174 (Version 3)
Quarter: 2020Q3

REPORT INFORMATION
  Report Type: Spontaneous
  Country: JP (occurrence: JP)
  Receive Date: 20200521
  Receipt Date: 20200826
  Transmission Date: 20201102
  Serious: Yes (Life-Threatening, Hospitalization, Other)
  Sender: FDA-Public Use
  Company Number: JP-PFIZER INC-2020200278

PATIENT
  Sex: Male

DRUGS (5)
  1. MIDAZOLAM. [Suspect]
     Active Substance: MIDAZOLAM
     Indication: SEDATION
     Dosage: 0.2 MG/KG/H
     Route: 042
  2. MIDAZOLAM. [Suspect]
     Active Substance: MIDAZOLAM
     Dosage: 0.3 MG/KG/H
     Route: 042
  3. DEXMEDETOMIDINE HYDROCHLORIDE. [Suspect]
     Active Substance: DEXMEDETOMIDINE HYDROCHLORIDE
     Indication: SEDATION
     Dosage: 0.4 MG/KG/H
     Route: 042
  4. MIDAZOLAM. [Suspect]
     Active Substance: MIDAZOLAM
     Dosage: 0.15 MG/KG/H
     Route: 042
  5. DEXMEDETOMIDINE HYDROCHLORIDE. [Suspect]
     Active Substance: DEXMEDETOMIDINE HYDROCHLORIDE
     Dosage: 0.4 UG/KG/H

REACTIONS (8)
  - Cardiogenic shock [Unknown]
  - Drug half-life increased [Unknown]
  - Neonatal seizure [Unknown]
  - Off label use [Unknown]
  - Postresuscitation encephalopathy [Unknown]
  - Drug level increased [Unknown]
  - Toxicity to various agents [Unknown]
  - Product use issue [Unknown]
